FAERS Safety Report 5838922-7 (Version None)
Quarter: 2008Q3

REPORT INFORMATION
  Report Type: 
  Country: None (occurrence: None)
  Receive Date: 20080808
  Receipt Date: 20080801
  Transmission Date: 20090109
  Serious: Yes (Hospitalization)
  Sender: FDA-Public Use
  Company Number: PHHY2008AR16649

PATIENT
  Sex: Male

DRUGS (2)
  1. DIOVAN TRIPLE [Suspect]
     Indication: HYPERTENSION
     Dosage: UNK
     Dates: start: 20070101
  2. SIDENAR [Concomitant]

REACTIONS (2)
  - SURGERY [None]
  - UMBILICAL HERNIA [None]
